FAERS Safety Report 8565523-2 (Version None)
Quarter: 2012Q3

REPORT INFORMATION
  Report Type: 
  Country: None (occurrence: None)
  Receive Date: 20120724
  Receipt Date: 20120716
  Transmission Date: 20120928
  Serious: Yes (Disabling, Other)
  Sender: FDA-Public Use
  Company Number: ACO_31156_2012

PATIENT

DRUGS (2)
  1. LEVOTHYROXINE SODIUM [Concomitant]
  2. AMPYRA [Suspect]
     Indication: PRODUCT USED FOR UNKNOWN INDICATION
     Dosage: 10 MG, QD, ORAL
     Route: 048
     Dates: start: 20120516

REACTIONS (3)
  - DYSSTASIA [None]
  - JOINT LOCK [None]
  - INAPPROPRIATE SCHEDULE OF DRUG ADMINISTRATION [None]
